FAERS Safety Report 14443828 (Version 1)
Quarter: 2018Q1

REPORT INFORMATION
  Report Type: Spontaneous
  Country: US (occurrence: US)
  Receive Date: 20180125
  Receipt Date: 20180125
  Transmission Date: 20180509
  Serious: No
  Sender: FDA-Public Use
  Company Number: None

PATIENT
  Age: 69 Year
  Sex: Female

DRUGS (1)
  1. TOBRAMYCIN 300MG/5ML SANDOZ [Suspect]
     Active Substance: TOBRAMYCIN
     Indication: BRONCHIECTASIS
     Dosage: 300 MG (1 AMPULE) TWICE DAILY FOR 28 DAYS ON, THEN 28 DAYS OFF  VIA NEBULIZER

REACTIONS (2)
  - Wheezing [None]
  - Feeling abnormal [None]

NARRATIVE: CASE EVENT DATE: 20180115
